FAERS Safety Report 7423779-3 (Version None)
Quarter: 2011Q2

REPORT INFORMATION
  Report Type: 
  Country: None (occurrence: None)
  Receive Date: 20110419
  Receipt Date: 20110323
  Transmission Date: 20111010
  Serious: No
  Sender: FDA-Public Use
  Company Number: US-B.I. PHARMACEUTICALS,INC./RIDGEFIELD-2011-BP-09005BP

PATIENT
  Sex: Female

DRUGS (8)
  1. AMIODARONE HCL [Suspect]
     Indication: ATRIAL FIBRILLATION
     Dosage: 400 MG
     Route: 048
     Dates: start: 20110218, end: 20110224
  2. ATACAND HCT [Concomitant]
     Indication: HYPERTENSION
     Route: 048
  3. PRADAXA [Suspect]
     Indication: ATRIAL FIBRILLATION
     Dosage: 300 MG
     Route: 048
     Dates: start: 20110315
  4. AMIODARONE HCL [Suspect]
     Dosage: 200 MG
     Route: 048
     Dates: start: 20110224, end: 20110303
  5. AMIODARONE [Concomitant]
     Dosage: 100 MG
     Route: 048
  6. M.V.I. [Concomitant]
     Indication: PROPHYLAXIS
     Route: 048
  7. GLUCOSAMINE [Concomitant]
     Indication: PROPHYLAXIS
     Route: 048
  8. AMIODARONE [Concomitant]
     Dosage: 100 MG
     Route: 048
     Dates: start: 20110304

REACTIONS (1)
  - DIZZINESS [None]
